FAERS Safety Report 17282762 (Version 1)
Quarter: 2020Q1

REPORT INFORMATION
  Report Type: Spontaneous
  Country: US (occurrence: US)
  Receive Date: 20200117
  Receipt Date: 20200117
  Transmission Date: 20200409
  Serious: Yes (Disabling, Other)
  Sender: FDA-Public Use
  Company Number: US-SA-2020SA013377

PATIENT
  Age: 49 Year
  Sex: Female

DRUGS (1)
  1. DUPIXENT [Suspect]
     Active Substance: DUPILUMAB
     Indication: ASTHMA
     Dosage: 300 MG, QOW
     Route: 058
     Dates: start: 20191226, end: 20200107

REACTIONS (12)
  - Condition aggravated [Recovering/Resolving]
  - Injection site urticaria [Recovering/Resolving]
  - Ear pain [Recovering/Resolving]
  - Disability [Recovering/Resolving]
  - Trismus [Recovering/Resolving]
  - Erythema [Recovering/Resolving]
  - Pain [Recovering/Resolving]
  - Arthralgia [Recovering/Resolving]
  - Hand deformity [Recovering/Resolving]
  - Hypersensitivity [Recovering/Resolving]
  - Temporomandibular joint syndrome [Recovering/Resolving]
  - Gait disturbance [Recovering/Resolving]

NARRATIVE: CASE EVENT DATE: 202001
